FAERS Safety Report 7883654-7 (Version None)
Quarter: 2011Q4

REPORT INFORMATION
  Report Type: 
  Country: None (occurrence: None)
  Receive Date: 20111102
  Receipt Date: 20111024
  Transmission Date: 20120403
  Serious: Yes (Death, Hospitalization)
  Sender: FDA-Public Use
  Company Number: US-SANOFI-AVENTIS-2011SA060493

PATIENT
  Age: 82 Year
  Sex: Male
  Weight: 77.72 kg

DRUGS (4)
  1. NEULASTA [Suspect]
     Route: 065
     Dates: start: 20101207, end: 20101207
  2. JEVTANA KIT [Suspect]
     Route: 041
     Dates: start: 20101013, end: 20101013
  3. JEVTANA KIT [Suspect]
     Indication: PROSTATE CANCER METASTATIC
     Route: 041
     Dates: start: 20100915, end: 20100915
  4. JEVTANA KIT [Suspect]
     Route: 041
     Dates: start: 20101206, end: 20101206

REACTIONS (2)
  - SEPTIC SHOCK [None]
  - PANCYTOPENIA [None]
